FAERS Safety Report 7999548-2 (Version None)
Quarter: 2011Q4

REPORT INFORMATION
  Report Type: 
  Country: None (occurrence: None)
  Receive Date: 20111221
  Receipt Date: 20111220
  Transmission Date: 20120403
  Serious: Yes (Other)
  Sender: FDA-Public Use
  Company Number: AU-ROCHE-1023665

PATIENT
  Sex: Female

DRUGS (5)
  1. ACTEMRA [Suspect]
     Indication: RHEUMATOID ARTHRITIS
  2. FOLIC ACID [Concomitant]
  3. METHOTREXATE [Concomitant]
  4. MODURETIC 5-50 [Concomitant]
  5. CRESTOR [Concomitant]

REACTIONS (1)
  - OROPHARYNGEAL PAIN [None]
